FAERS Safety Report 12156322 (Version 1)
Quarter: 2016Q1

REPORT INFORMATION
  Report Type: Spontaneous
  Country: US (occurrence: US)
  Receive Date: 20160307
  Receipt Date: 20160307
  Transmission Date: 20160526
  Serious: Yes (Other)
  Sender: FDA-Public Use
  Company Number: US-TEVA-640289USA

PATIENT
  Sex: Female

DRUGS (2)
  1. TAMOXIFEN [Suspect]
     Active Substance: TAMOXIFEN
     Route: 065
  2. FLUOROURACIL. [Suspect]
     Active Substance: FLUOROURACIL
     Route: 065

REACTIONS (4)
  - Breast cancer stage II [Unknown]
  - Breast cancer [Unknown]
  - Barrett^s oesophagus [Unknown]
  - Deep vein thrombosis [Unknown]
